FAERS Safety Report 7903706-2 (Version None)
Quarter: 2011Q4

REPORT INFORMATION
  Report Type: 
  Country: None (occurrence: None)
  Receive Date: 20111109
  Receipt Date: 20111104
  Transmission Date: 20120403
  Serious: Yes (Other)
  Sender: FDA-Public Use
  Company Number: US-ROCHE-1004003

PATIENT
  Sex: Male
  Weight: 76.726 kg

DRUGS (5)
  1. METHOTREXATE [Concomitant]
     Indication: ECZEMA
     Route: 048
  2. LORATADINE [Concomitant]
     Route: 048
  3. CRESTOR [Concomitant]
     Indication: HYPERLIPIDAEMIA
     Route: 048
  4. XOLAIR [Suspect]
     Indication: ASTHMA
     Route: 058
     Dates: start: 20100701
  5. METFORMIN HCL [Concomitant]
     Indication: DIABETES MELLITUS
     Route: 048

REACTIONS (1)
  - HYPERTENSION [None]
